FAERS Safety Report 15075102 (Version 1)
Quarter: 2018Q2

REPORT INFORMATION
  Report Type: Spontaneous
  Country: US (occurrence: US)
  Receive Date: 20180627
  Receipt Date: 20180627
  Transmission Date: 20180711
  Serious: Yes (Other)
  Sender: FDA-Public Use
  Company Number: US-SAOL THERAPEUTICS-2017SAO03440

PATIENT
  Age: 13 Year
  Sex: Female
  Weight: 47.67 kg

DRUGS (1)
  1. BACLOFEN. [Suspect]
     Active Substance: BACLOFEN
     Dosage: 330 ?G, \DAY
     Route: 037

REACTIONS (2)
  - Muscle tightness [Unknown]
  - Device battery issue [Unknown]

NARRATIVE: CASE EVENT DATE: 201712
